FAERS Safety Report 6290746-5 (Version None)
Quarter: 2009Q3

REPORT INFORMATION
  Report Type: 
  Country: None (occurrence: None)
  Receive Date: 20090730
  Receipt Date: 20090720
  Transmission Date: 20100115
  Serious: Yes (Other)
  Sender: FDA-Public Use
  Company Number: PHHY2009CA30497

PATIENT
  Sex: Female

DRUGS (3)
  1. DIOVAN [Suspect]
     Dosage: 1 DF, QD
     Route: 048
  2. LOPRESOR [Suspect]
     Dosage: ONCE A DAY
     Route: 048
  3. NORVASC [Concomitant]

REACTIONS (5)
  - FEELING HOT [None]
  - HEADACHE [None]
  - SCIATICA [None]
  - SWELLING FACE [None]
  - WEIGHT INCREASED [None]
